FAERS Safety Report 7084234-6 (Version None)
Quarter: 2010Q4

REPORT INFORMATION
  Report Type: 
  Country: None (occurrence: None)
  Receive Date: 20101104
  Receipt Date: 20101029
  Transmission Date: 20110411
  Serious: Yes (Other)
  Sender: FDA-Public Use
  Company Number: GB-PFIZER INC-2010138496

PATIENT
  Age: 50 Year
  Sex: Female

DRUGS (2)
  1. CHAMPIX [Suspect]
     Indication: SMOKING CESSATION THERAPY
     Dosage: 1 MG, 2X/DAY
     Route: 048
     Dates: start: 20100909
  2. OLANZAPINE [Concomitant]
     Dosage: UNK

REACTIONS (2)
  - DISEASE RECURRENCE [None]
  - MENTAL DISORDER [None]
